FAERS Safety Report 5907624-0 (Version None)
Quarter: 2008Q4

REPORT INFORMATION
  Report Type: 
  Country: None (occurrence: None)
  Receive Date: 20081002
  Receipt Date: 20081002
  Transmission Date: 20090506
  Serious: Yes (Hospitalization)
  Sender: FDA-Public Use
  Company Number: None

PATIENT
  Age: 89 Year
  Sex: Female
  Weight: 60.782 kg

DRUGS (1)
  1. DIGITEK 125 MCG BERTEK [Suspect]
     Indication: ATRIAL FIBRILLATION
     Dosage: 125 MCG 1 DAILY ORAL
     Route: 048
     Dates: start: 20070329, end: 20080203

REACTIONS (3)
  - DIZZINESS POSTURAL [None]
  - HEART RATE DECREASED [None]
  - VISION BLURRED [None]
